FAERS Safety Report 16213855 (Version 3)
Quarter: 2019Q2

REPORT INFORMATION
  Report Type: Spontaneous
  Country: US (occurrence: US)
  Receive Date: 20190418
  Receipt Date: 20190617
  Transmission Date: 20190711
  Serious: Yes (Death, Hospitalization, Other)
  Sender: FDA-Public Use
  Company Number: US-PFIZER INC-2019098823

PATIENT
  Age: 46 Year
  Sex: Female
  Weight: 45.35 kg

DRUGS (15)
  1. LEVOTHYROXINE. [Concomitant]
     Active Substance: LEVOTHYROXINE
     Indication: HYPOTHYROIDISM
     Dosage: UNK
     Dates: start: 2017, end: 20190331
  2. LEVOTHYROXINE. [Concomitant]
     Active Substance: LEVOTHYROXINE
     Dosage: 75 UG, 1X/DAY
     Route: 048
     Dates: start: 20170310
  3. LOMOTIL [LOPERAMIDE HYDROCHLORIDE] [Concomitant]
     Indication: DIARRHOEA
     Dosage: UNK, AS NEEDED
     Dates: start: 20190307, end: 20190331
  4. LOPERAMIDE [Concomitant]
     Active Substance: LOPERAMIDE
     Dosage: 4 MG, UNK (TAKE 2 TABLETS (4 MG) BY MOUTH WITH 1ST DOSE OF NERATINIB)
     Route: 048
     Dates: start: 20190307
  5. SOLU-MEDROL [Concomitant]
     Active Substance: METHYLPREDNISOLONE SODIUM SUCCINATE
     Dosage: 60 MG, UNK (GIVEN EVERY 6 HOURS)
  6. NERATINIB [Suspect]
     Active Substance: NERATINIB
     Dosage: 160 MG, DAILY (TAKE 4 TABLETS (160 MG) BY MOUTH DAILY FOR 28 DAYS. TAKE WITH FOOD)
     Route: 048
     Dates: start: 20190307
  7. LOMOTIL [LOPERAMIDE HYDROCHLORIDE] [Concomitant]
     Dosage: UNK, AS NEEDED [2.5 MG-0.025 MG]
     Route: 048
     Dates: start: 20190307
  8. LOPERAMIDE [Concomitant]
     Active Substance: LOPERAMIDE
     Dosage: 4 MG, 3X/DAY (4 MG BY MOUTH THREE TIMES A DAY FOR 14 DAYS)
     Route: 048
     Dates: start: 20190307
  9. COMPAZINE [Concomitant]
     Active Substance: PROCHLORPERAZINE MALEATE
     Indication: VOMITING
  10. MORPHINE SULFATE. [Concomitant]
     Active Substance: MORPHINE SULFATE
     Indication: DYSPNOEA
     Dosage: UNK
  11. IBRANCE [Suspect]
     Active Substance: PALBOCICLIB
     Indication: BREAST CANCER FEMALE
     Dosage: 75 MG, CYCLIC (TAKE 1 CAPSULE (75 MG) BY MOUTH DAILY FOR 21 DAYS. TAKE ON DAYS 1 - 21, THEN OFF 7 D)
     Route: 048
     Dates: start: 20190307, end: 20190326
  12. LOPERAMIDE [Concomitant]
     Active Substance: LOPERAMIDE
     Dosage: 4 MG, CYCLIC [TWICE A DAY FOR 14 DAYS ON CYCLE 1]
     Route: 048
     Dates: start: 20190307
  13. IMODIUM [Concomitant]
     Active Substance: LOPERAMIDE HYDROCHLORIDE
     Indication: DIARRHOEA
     Dosage: UNK
     Dates: start: 20190307, end: 20190331
  14. OPIUM. [Concomitant]
     Active Substance: OPIUM
     Indication: DIARRHOEA
     Dosage: 0.6 ML, AS NEEDED (TAKE 0.6 ML (6 MG) BY MOUTH EVERY 6 (SIX) HOURS AS NEEDED FOR DIARRHEA-ORAL)
     Route: 048
     Dates: start: 20190307
  15. COMPAZINE [Concomitant]
     Active Substance: PROCHLORPERAZINE MALEATE
     Indication: NAUSEA
     Dosage: 10 MG, AS NEEDED (TAKE 1 TABLET (10 MG) BY MOUTH EVERY 6 (SIX) HOURS AS NEEDED ORAL)
     Route: 048
     Dates: start: 20190307

REACTIONS (20)
  - Pleural effusion [Unknown]
  - Ear pain [Unknown]
  - Oxygen saturation increased [Unknown]
  - Loss of consciousness [Unknown]
  - Ejection fraction decreased [Unknown]
  - Blood glucose decreased [Unknown]
  - Dyspnoea [Unknown]
  - Hypotension [Unknown]
  - Cardio-respiratory arrest [Fatal]
  - Neoplasm progression [Fatal]
  - Cough [Unknown]
  - Sinus tachycardia [Unknown]
  - Respiratory failure [Unknown]
  - Lethargy [Unknown]
  - Brain natriuretic peptide increased [Unknown]
  - Pneumonia [Unknown]
  - Lung disorder [Unknown]
  - Venous pressure jugular increased [Unknown]
  - Hypoxia [Unknown]
  - Fatigue [Unknown]

NARRATIVE: CASE EVENT DATE: 201903
